FAERS Safety Report 10949632 (Version 1)
Quarter: 2015Q1

REPORT INFORMATION
  Report Type: Spontaneous
  Country: US (occurrence: None)
  Receive Date: 20150226
  Receipt Date: 20150226
  Transmission Date: 20150721
  Serious: Yes (Other)
  Sender: FDA-Public Use
  Company Number: TAP2006Q00875

PATIENT
  Age: 63 Year
  Sex: Male
  Weight: 68.18 kg

DRUGS (1)
  1. PREVACID [Suspect]
     Active Substance: LANSOPRAZOLE
     Indication: GASTROOESOPHAGEAL REFLUX DISEASE
     Dosage: ONE DOSE
     Route: 048
     Dates: start: 20060324, end: 20060324

REACTIONS (6)
  - Loss of consciousness [None]
  - Hypotension [None]
  - Anaphylactic shock [None]
  - Pruritus [None]
  - Heart rate decreased [None]
  - Body temperature decreased [None]

NARRATIVE: CASE EVENT DATE: 20060324
